FAERS Safety Report 9602990 (Version 1)
Quarter: 2013Q4

REPORT INFORMATION
  Report Type: Report from Study
  Country: US (occurrence: US)
  Receive Date: 20131007
  Receipt Date: 20131007
  Transmission Date: 20140711
  Serious: Yes (Death)
  Sender: FDA-Public Use
  Company Number: US-JNJFOC-20131002419

PATIENT
  Age: 80 Year
  Sex: Female
  Weight: 56.7 kg

DRUGS (2)
  1. REMICADE [Suspect]
     Indication: ARTHRITIS
     Route: 042
  2. REMICADE [Suspect]
     Indication: ARTHRITIS
     Route: 042

REACTIONS (2)
  - Myocardial infarction [Fatal]
  - Therapeutic response decreased [Unknown]
